FAERS Safety Report 24025835 (Version 2)
Quarter: 2024Q3

REPORT INFORMATION
  Report Type: Spontaneous
  Country: US (occurrence: US)
  Receive Date: 20240628
  Receipt Date: 20240712
  Transmission Date: 20241016
  Serious: No
  Sender: SANOFI AVENTIS
  Company Number: US-SANOFI-02107050

PATIENT
  Sex: Male

DRUGS (2)
  1. LANTUS [Suspect]
     Active Substance: INSULIN GLARGINE
     Indication: Diabetes mellitus
     Dosage: (7-8 UNITS), QD
  2. LANTUS [Suspect]
     Active Substance: INSULIN GLARGINE
     Dosage: 8-10 UNITS QD

REACTIONS (2)
  - Product use issue [Unknown]
  - Product storage error [Unknown]
